FAERS Safety Report 5042269-9 (Version None)
Quarter: 2006Q2

REPORT INFORMATION
  Report Type: 
  Country: None (occurrence: None)
  Receive Date: 20060627
  Receipt Date: 20060613
  Transmission Date: 20061013
  Serious: Yes (Hospitalization, Disabling)
  Sender: FDA-Public Use
  Company Number: 2006076734

PATIENT
  Age: 82 Year
  Sex: Female
  Weight: 60.782 kg

DRUGS (8)
  1. NORVASC [Suspect]
     Indication: BLOOD PRESSURE
     Dosage: STOPPED 8-9 YEARS AGO
  2. SULAR [Suspect]
     Indication: BLOOD PRESSURE
     Dates: start: 20050124
  3. LOTREL [Suspect]
     Indication: BLOOD PRESSURE
     Dates: start: 20060301, end: 20060401
  4. DIOVAN [Suspect]
     Indication: BLOOD PRESSURE
  5. SYNTHROID [Concomitant]
  6. ACETYLSALICYLIC ACID SRT [Concomitant]
  7. CHONDROITIN (CHONDROITIN SULFATE) [Concomitant]
  8. VITAMINS [Concomitant]

REACTIONS (13)
  - ALOPECIA [None]
  - CATARACT OPERATION [None]
  - CONSTIPATION [None]
  - DIFFICULTY IN WALKING [None]
  - DIVERTICULITIS [None]
  - DRUG INEFFECTIVE [None]
  - GASTROINTESTINAL DISORDER [None]
  - HEADACHE [None]
  - HICCUPS [None]
  - ILL-DEFINED DISORDER [None]
  - MUSCLE SPASMS [None]
  - MUSCULAR WEAKNESS [None]
  - PAIN IN EXTREMITY [None]
